FAERS Safety Report 4756622-1 (Version None)
Quarter: 2005Q3

REPORT INFORMATION
  Report Type: 
  Country: None (occurrence: None)
  Receive Date: 20050830
  Receipt Date: 20050413
  Transmission Date: 20060218
  Serious: Yes (Hospitalization)
  Sender: FDA-Public Use
  Company Number: US-MERCK-0504USA02180

PATIENT
  Age: 59 Year
  Sex: Male
  Weight: 98 kg

DRUGS (14)
  1. VIOXX [Suspect]
     Indication: ARTHRALGIA
     Route: 048
     Dates: start: 19991116, end: 20031223
  2. DIOVAN [Concomitant]
     Indication: HYPERTENSION
     Route: 065
     Dates: start: 19981105
  3. NORVASC [Concomitant]
     Indication: HYPERTENSION
     Route: 065
     Dates: start: 19980331, end: 20041101
  4. CELEBREX [Concomitant]
     Indication: PAIN
     Route: 065
     Dates: start: 19990426, end: 20020101
  5. PREDNISONE [Concomitant]
     Indication: PAIN
     Route: 065
     Dates: start: 19990429, end: 20020101
  6. PREDNISONE [Concomitant]
     Indication: HORMONE LEVEL ABNORMAL
     Route: 065
     Dates: start: 19990429, end: 20020101
  7. SULFAMETHOXAZOLE [Concomitant]
     Indication: PAIN
     Route: 065
  8. ACULAR [Concomitant]
     Indication: EYE PRURITUS
     Route: 065
  9. GLUCOPHAGE [Concomitant]
     Indication: DIABETES MELLITUS
     Route: 065
  10. AMARYL [Concomitant]
     Indication: DIABETES MELLITUS
     Route: 065
  11. RANITIDINE [Concomitant]
     Indication: GASTROOESOPHAGEAL REFLUX DISEASE
     Route: 065
  12. PROTONIX [Concomitant]
     Indication: GASTROOESOPHAGEAL REFLUX DISEASE
     Route: 065
  13. SUCRALFATE [Concomitant]
     Indication: ULCER
     Route: 065
  14. ACETAMINOPHEN AND CODEINE PHOSPHATE [Concomitant]
     Indication: PAIN
     Route: 065

REACTIONS (17)
  - ACUTE MYOCARDIAL INFARCTION [None]
  - ANAEMIA [None]
  - AORTIC ANEURYSM [None]
  - CEREBROVASCULAR ACCIDENT [None]
  - COLONIC POLYP [None]
  - CORONARY ARTERY DISEASE [None]
  - CORONARY ARTERY OCCLUSION [None]
  - DRUG ADMINISTRATION ERROR [None]
  - FEMORAL ARTERY OCCLUSION [None]
  - GASTRITIS [None]
  - GASTROINTESTINAL HAEMORRHAGE [None]
  - HYPERLIPIDAEMIA [None]
  - HYPERTRIGLYCERIDAEMIA [None]
  - OESOPHAGITIS [None]
  - PERIPHERAL VASCULAR DISORDER [None]
  - RENAL CYST [None]
  - RENAL FAILURE [None]
